FAERS Safety Report 8663893 (Version 4)
Quarter: 2013Q1

REPORT INFORMATION
  Report Type: Report from Study
  Country: JP (occurrence: JP)
  Receive Date: 20120713
  Receipt Date: 20130219
  Transmission Date: 20140127
  Serious: Yes (Other)
  Sender: FDA-Public Use
  Company Number: JP-AMGEN-JPNCT2012043051

PATIENT
  Age: 79 Year
  Sex: Male
  Weight: 47 kg

DRUGS (18)
  1. DARBEPOETIN ALFA [Suspect]
     Indication: NEPHROGENIC ANAEMIA
     Dosage: 60 MUG, Q4WK
     Route: 040
     Dates: start: 20110119
  2. DARBEPOETIN ALFA [Suspect]
     Dosage: 60 MUG, Q4WK
     Route: 040
     Dates: start: 20110727, end: 20111115
  3. DARBEPOETIN ALFA [Suspect]
     Dosage: 60 MUG, QD
     Route: 040
     Dates: start: 20111221, end: 20111221
  4. DARBEPOETIN ALFA [Suspect]
     Dosage: 120 MUG, QD
     Route: 040
     Dates: start: 20120118, end: 20120314
  5. DARBEPOETIN ALFA [Suspect]
     Dosage: 60 MUG, Q4WK
     Route: 040
     Dates: start: 20120411
  6. DARBEPOETIN ALFA [Suspect]
     Dosage: 120 MUG, Q4WK
     Route: 040
     Dates: start: 20120606, end: 20120829
  7. DARBEPOETIN ALFA [Suspect]
     Dosage: 120 MUG, Q4WK
     Route: 040
     Dates: start: 20120919
  8. CALBLOCK [Concomitant]
     Dosage: UNK
     Route: 048
  9. BAYASPIRIN [Concomitant]
     Dosage: UNK
     Route: 048
  10. OMEPRAL [Concomitant]
     Dosage: UNK
     Route: 048
  11. ARGAMATE [Concomitant]
     Dosage: UNK
     Route: 048
  12. DIOVAN [Concomitant]
     Dosage: UNK
     Route: 048
  13. THYRADIN S [Concomitant]
     Dosage: UNK
     Route: 048
  14. FERO-GRADUMET [Concomitant]
     Dosage: UNK
     Route: 048
  15. SENNAL [Concomitant]
     Dosage: UNK
     Route: 048
  16. LIPOVATOL [Concomitant]
     Dosage: UNK
     Route: 048
  17. IRBETAN [Concomitant]
     Dosage: UNK
     Route: 048
     Dates: end: 20120810
  18. KAYEXALATE [Concomitant]
     Dosage: UNK
     Route: 048

REACTIONS (4)
  - Hypothyroidism [Recovered/Resolved]
  - Blood potassium increased [Recovered/Resolved]
  - Renal impairment [Recovering/Resolving]
  - Blood pressure decreased [Recovered/Resolved]
